FAERS Safety Report 9573080 (Version 2)
Quarter: 2013Q4

REPORT INFORMATION
  Report Type: Spontaneous
  Country: US (occurrence: US)
  Receive Date: 20131001
  Receipt Date: 20131001
  Transmission Date: 20140711
  Serious: No
  Sender: FDA-Public Use
  Company Number: US-BIOGENIDEC-2013BI069813

PATIENT
  Age: 47 Year
  Sex: Female

DRUGS (7)
  1. TECFIDERA [Suspect]
     Indication: MULTIPLE SCLEROSIS
     Route: 048
     Dates: start: 20130711
  2. TECFIDERA [Suspect]
     Indication: MULTIPLE SCLEROSIS
     Route: 048
     Dates: start: 20130730
  3. TYLENOL ES [Concomitant]
  4. MODAFINIL [Concomitant]
  5. BUTALBITAL/ACETAMINOPHEN/CAFFEINE [Concomitant]
  6. NARATRIPTAN HCL [Concomitant]
  7. VITAMIN D [Concomitant]

REACTIONS (2)
  - Flushing [Recovered/Resolved]
  - Headache [Unknown]
